FAERS Safety Report 7395432-6 (Version None)
Quarter: 2011Q1

REPORT INFORMATION
  Report Type: 
  Country: None (occurrence: None)
  Receive Date: 20110331
  Receipt Date: 20110331
  Transmission Date: 20110831
  Serious: Yes (Other)
  Sender: FDA-Public Use
  Company Number: None

PATIENT
  Sex: Female
  Weight: 125.6464 kg

DRUGS (1)
  1. SAVELLA [Suspect]
     Indication: FIBROMYALGIA
     Dosage: 50 MG TWICE DAILY PO
     Route: 048
     Dates: start: 20110201, end: 20110208

REACTIONS (4)
  - ABDOMINAL PAIN [None]
  - NAUSEA [None]
  - DYSPEPSIA [None]
  - VOMITING [None]
